FAERS Safety Report 20797967 (Version 1)
Quarter: 2022Q2

REPORT INFORMATION
  Report Type: Spontaneous
  Country: US (occurrence: None)
  Receive Date: 20220506
  Receipt Date: 20220506
  Transmission Date: 20220721
  Serious: No
  Sender: FDA-Public Use
  Company Number: None

PATIENT
  Age: 71 Year
  Sex: Female

DRUGS (12)
  1. KISQALI [Suspect]
     Active Substance: RIBOCICLIB
     Indication: Breast cancer
     Dosage: OTHER FREQUENCY : QDX21 OF 28D;?
     Route: 048
     Dates: start: 20220415
  2. ALPRAZOLAM [Concomitant]
  3. CALCIUM + D CHEWABLE [Concomitant]
  4. DOCUSATE CALCIUM [Concomitant]
     Active Substance: DOCUSATE CALCIUM
  5. MELOXICAM [Concomitant]
     Active Substance: MELOXICAM
  6. PROCHLORPERAZINE [Concomitant]
     Active Substance: PROCHLORPERAZINE
  7. PROMETHAZINE [Concomitant]
     Active Substance: PROMETHAZINE HYDROCHLORIDE
  8. TRAZODONE [Concomitant]
     Active Substance: TRAZODONE HYDROCHLORIDE
  9. BUSPIRONE [Concomitant]
     Active Substance: BUSPIRONE HYDROCHLORIDE
  10. AROMASIN [Concomitant]
  11. OXYCODONE [Concomitant]
     Active Substance: OXYCODONE
  12. ZOFRAN [Concomitant]
     Active Substance: ONDANSETRON HYDROCHLORIDE

REACTIONS (1)
  - Nausea [None]

NARRATIVE: CASE EVENT DATE: 20220415
